FAERS Safety Report 5274807-5 (Version None)
Quarter: 2007Q1

REPORT INFORMATION
  Report Type: 
  Country: None (occurrence: None)
  Receive Date: 20070321
  Receipt Date: 20060519
  Transmission Date: 20070707
  Serious: Yes (Hospitalization)
  Sender: FDA-Public Use
  Company Number: 233286K06USA

PATIENT
  Age: 64 Year
  Sex: Female

DRUGS (2)
  1. REBIF (INTERFERSON BETA) [Suspect]
     Indication: MULTIPLE SCLEROSIS
     Dosage: SEE IMAGE
     Dates: start: 20040615, end: 20060101
  2. REBIF (INTERFERSON BETA) [Suspect]
     Indication: MULTIPLE SCLEROSIS
     Dosage: SEE IMAGE
     Dates: start: 20060501, end: 20060529

REACTIONS (5)
  - BODY TEMPERATURE INCREASED [None]
  - OPEN WOUND [None]
  - THROMBOSIS [None]
  - WOUND HAEMORRHAGE [None]
  - WOUND INFECTION [None]
